FAERS Safety Report 17841465 (Version 3)
Quarter: 2022Q2

REPORT INFORMATION
  Report Type: Spontaneous
  Country: US (occurrence: US)
  Receive Date: 20200529
  Receipt Date: 20220516
  Transmission Date: 20220721
  Serious: Yes (Other)
  Sender: FDA-Public Use
  Company Number: US-PFIZER INC-2020210095

PATIENT
  Age: 63 Year
  Sex: Male

DRUGS (2)
  1. XELJANZ XR [Suspect]
     Active Substance: TOFACITINIB CITRATE
     Dosage: 11 MG
     Dates: start: 20200403
  2. XELJANZ XR [Suspect]
     Active Substance: TOFACITINIB CITRATE
     Dosage: 11 MG
     Dates: start: 20201129, end: 2020

REACTIONS (5)
  - Urinary retention [Unknown]
  - Hypertension [Unknown]
  - Herpes zoster [Unknown]
  - Skin infection [Unknown]
  - Folliculitis [Unknown]

NARRATIVE: CASE EVENT DATE: 20200101
